FAERS Safety Report 5082098-3 (Version None)
Quarter: 2006Q3

REPORT INFORMATION
  Report Type: 
  Country: None (occurrence: None)
  Receive Date: 20060815
  Receipt Date: 20060815
  Transmission Date: 20061208
  Serious: Yes (Death)
  Sender: FDA-Public Use
  Company Number: None

PATIENT
  Age: 80 Year
  Sex: Male
  Weight: 60.3284 kg

DRUGS (1)
  1. MEGESTROL ACETATE [Suspect]
     Indication: WEIGHT DECREASED
     Dosage: 800 MG (20 ML)
     Dates: start: 20060321

REACTIONS (2)
  - MYOCARDIAL INFARCTION [None]
  - TREATMENT NONCOMPLIANCE [None]
